FAERS Safety Report 6746908-3 (Version None)
Quarter: 2010Q2

REPORT INFORMATION
  Report Type: 
  Country: None (occurrence: None)
  Receive Date: 20100528
  Receipt Date: 20091207
  Transmission Date: 20101027
  Serious: No
  Sender: FDA-Public Use
  Company Number: US-ASTRAZENECA-2010SE01273

PATIENT
  Sex: Female

DRUGS (3)
  1. PRILOSEC OTC [Suspect]
     Route: 048
     Dates: start: 20091204
  2. LIPITOR [Concomitant]
     Dosage: UNKNOWN
  3. VITAMINS                           /90003601/ [Concomitant]
     Dosage: UNKNOWN

REACTIONS (3)
  - DISORIENTATION [None]
  - DIZZINESS [None]
  - SOMNOLENCE [None]
